APPROVED DRUG PRODUCT: TIAGABINE HYDROCHLORIDE
Active Ingredient: TIAGABINE HYDROCHLORIDE
Strength: 4MG
Dosage Form/Route: TABLET;ORAL
Application: A214816 | Product #002 | TE Code: AB
Applicant: MSN LABORATORIES PRIVATE LTD
Approved: Nov 16, 2021 | RLD: No | RS: No | Type: RX